FAERS Safety Report 24319938 (Version 1)
Quarter: 2024Q3

REPORT INFORMATION
  Report Type: Spontaneous
  Country: US (occurrence: US)
  Receive Date: 20240914
  Receipt Date: 20240914
  Transmission Date: 20241016
  Serious: No
  Sender: DR REDDYS
  Company Number: US-DRL-USA-SPO/USA/24/0013025

PATIENT
  Age: 73 Year
  Sex: Female
  Weight: 98 kg

DRUGS (1)
  1. NICOTINE POLACRILEX [Suspect]
     Active Substance: NICOTINE
     Indication: Ex-tobacco user
     Route: 065
     Dates: start: 20240826, end: 20240902

REACTIONS (4)
  - Oropharyngeal pain [Unknown]
  - Dyspepsia [Unknown]
  - Headache [Unknown]
  - Abdominal discomfort [Unknown]
